FAERS Safety Report 5562732-1 (Version None)
Quarter: 2007Q4

REPORT INFORMATION
  Report Type: 
  Country: None (occurrence: None)
  Receive Date: 20071217
  Receipt Date: 20071215
  Transmission Date: 20080405
  Serious: Yes (Hospitalization)
  Sender: FDA-Public Use
  Company Number: PHHO2005BE03303

PATIENT
  Age: 68 Year
  Sex: Male

DRUGS (6)
  1. ZOLEDRONIC ACID [Suspect]
     Indication: OSTEOPOROTIC FRACTURE
     Dosage: DOUBLE-BLIND
     Route: 042
     Dates: start: 20040213
  2. ZOLEDRONIC ACID [Suspect]
     Dosage: 5MG, ONCE YEARLY
  3. VITAMIN D [Concomitant]
     Indication: OSTEOPOROTIC FRACTURE
     Dosage: 400 IU, BID
     Route: 048
  4. CALCIUM CARBONATE [Concomitant]
     Indication: OSTEOPOROTIC FRACTURE
     Dosage: 500 MG, BID
     Route: 048
  5. STEOVIT D3 [Concomitant]
  6. BUSCOPAN [Concomitant]

REACTIONS (8)
  - CONCOMITANT DISEASE PROGRESSION [None]
  - GASTROENTERITIS [None]
  - HIP ARTHROPLASTY [None]
  - HIP DYSPLASIA [None]
  - INTESTINAL OBSTRUCTION [None]
  - OSTEOARTHRITIS [None]
  - OSTEONECROSIS [None]
  - PAIN IN EXTREMITY [None]
